FAERS Safety Report 7516471-8 (Version None)
Quarter: 2011Q2

REPORT INFORMATION
  Report Type: 
  Country: None (occurrence: None)
  Receive Date: 20110601
  Receipt Date: 20091124
  Transmission Date: 20111010
  Serious: Yes (Hospitalization)
  Sender: FDA-Public Use
  Company Number: A0832574A

PATIENT
  Age: 64 Year
  Sex: Male

DRUGS (1)
  1. AVANDIA [Suspect]
     Dosage: 4MG PER DAY
     Route: 048
     Dates: start: 20051205, end: 20070924

REACTIONS (8)
  - ANGINA UNSTABLE [None]
  - DYSPNOEA [None]
  - CORONARY ANGIOPLASTY [None]
  - CHEST PAIN [None]
  - CARDIOVASCULAR DISORDER [None]
  - STENT PLACEMENT [None]
  - TACHYCARDIA [None]
  - HEART RATE IRREGULAR [None]
